FAERS Safety Report 8625582-5 (Version None)
Quarter: 2012Q3

REPORT INFORMATION
  Report Type: 
  Country: None (occurrence: None)
  Receive Date: 20120827
  Receipt Date: 20120822
  Transmission Date: 20120928
  Serious: Yes (Death, Other)
  Sender: FDA-Public Use
  Company Number: JP-PFIZER INC-2012205451

PATIENT
  Age: 74 Year
  Sex: Male
  Weight: 56 kg

DRUGS (2)
  1. METOCLOPRAMIDE [Interacting]
     Dosage: 10 MG, SINGLE
  2. HYDROCORTISONE SODIUM SUCCINATE [Suspect]
     Indication: SHOCK
     Dosage: 500 MG, SINGLE

REACTIONS (3)
  - MULTI-ORGAN FAILURE [None]
  - PHAEOCHROMOCYTOMA CRISIS [None]
  - DRUG INTERACTION [None]
